FAERS Safety Report 20771233 (Version 1)
Quarter: 2022Q2

REPORT INFORMATION
  Report Type: Spontaneous
  Country: US (occurrence: US)
  Receive Date: 20220429
  Receipt Date: 20220429
  Transmission Date: 20220721
  Serious: No
  Sender: FDA-Public Use
  Company Number: US-PFIZER INC-2019454319

PATIENT
  Age: 78 Year
  Sex: Female

DRUGS (3)
  1. LYRICA [Suspect]
     Active Substance: PREGABALIN
     Indication: Polyarthritis
     Dosage: 125 MG, DAILY (AT 1 CAPSULE DAILY IN THE AM, IN ADDITION TO 100 MG AT BEDTIME)
     Route: 048
     Dates: start: 20191014
  2. LYRICA [Suspect]
     Active Substance: PREGABALIN
     Indication: Fibromyalgia
     Dosage: 100 MG, 1X/DAY(IN ADDITION TO 100 MG AT BEDTIME)
     Route: 048
  3. LYRICA [Suspect]
     Active Substance: PREGABALIN
     Dosage: 25 MG, 1X/DAY (SIG: 1 (ONE) CAPSULE DAILY IN THE AM)
     Route: 048

REACTIONS (1)
  - Feeling abnormal [Unknown]
